FAERS Safety Report 10413866 (Version 2)
Quarter: 2014Q3

REPORT INFORMATION
  Report Type: Report from Study
  Country: DE (occurrence: DE)
  Receive Date: 20140827
  Receipt Date: 20140904
  Transmission Date: 20150326
  Serious: Yes (Hospitalization, Other)
  Sender: FDA-Public Use
  Company Number: DE-ABBVIE-14K-062-1274720-00

PATIENT
  Age: 52 Year
  Sex: Female
  Weight: 65 kg

DRUGS (6)
  1. PREDNISOLONE. [Concomitant]
     Active Substance: PREDNISOLONE
     Indication: PRODUCT USED FOR UNKNOWN INDICATION
  2. EUTHYROX [Concomitant]
     Active Substance: LEVOTHYROXINE SODIUM
     Indication: PRODUCT USED FOR UNKNOWN INDICATION
  3. HUMIRA [Suspect]
     Active Substance: ADALIMUMAB
     Indication: RHEUMATOID ARTHRITIS
     Route: 058
     Dates: start: 20120111
  4. SPASMEX [Concomitant]
     Active Substance: TROSPIUM CHLORIDE
     Indication: PRODUCT USED FOR UNKNOWN INDICATION
     Dosage: 1-0.5-0.5
  5. CYMBALTA [Concomitant]
     Active Substance: DULOXETINE HYDROCHLORIDE
     Indication: PRODUCT USED FOR UNKNOWN INDICATION
  6. OMEPRAZOLE. [Concomitant]
     Active Substance: OMEPRAZOLE
     Indication: PRODUCT USED FOR UNKNOWN INDICATION
     Dosage: 1-0-1

REACTIONS (13)
  - Laryngitis [Not Recovered/Not Resolved]
  - Hyperplasia [Recovered/Resolved]
  - Dyspnoea [Recovering/Resolving]
  - Stress [Unknown]
  - Turbinectomy [Recovered/Resolved]
  - Mucosal dryness [Unknown]
  - Alcohol abuse [Not Recovered/Not Resolved]
  - Vocal cord disorder [Unknown]
  - Epiglottic cyst [Not Recovered/Not Resolved]
  - Paresis [Unknown]
  - Nasal septal operation [Recovered/Resolved]
  - Dysphagia [Recovering/Resolving]
  - Laryngeal oedema [Unknown]

NARRATIVE: CASE EVENT DATE: 201208
